FAERS Safety Report 14955484 (Version 4)
Quarter: 2018Q2

REPORT INFORMATION
  Report Type: Spontaneous
  Country: FR (occurrence: FR)
  Receive Date: 20180531
  Receipt Date: 20180628
  Transmission Date: 20180711
  Serious: Yes (Hospitalization, Other)
  Sender: FDA-Public Use
  Company Number: FR-CONCORDIA PHARMACEUTICALS INC.-E2B_00012001

PATIENT

DRUGS (4)
  1. CHLORHEXIDINE [Suspect]
     Active Substance: CHLORHEXIDINE
     Indication: INFECTION PROPHYLAXIS
     Dosage: UNK, 3 TIMES A DAY
  2. PREDNISOLONE. [Suspect]
     Active Substance: PREDNISOLONE
     Indication: CRYOGLOBULINAEMIA
     Dosage: 0.5 MILLIGRAM/KILOGRAM
     Route: 040
  3. METHYLPREDNISOLONE. [Suspect]
     Active Substance: METHYLPREDNISOLONE
     Indication: CRYOGLOBULINAEMIA
     Dosage: 3 BOLUSES OF 1 GRAM
     Route: 040
  4. RITUXIMAB. [Suspect]
     Active Substance: RITUXIMAB
     Indication: CRYOGLOBULINAEMIA
     Dosage: WEEKLY INFUSION OF 375 G/M2 DURING FOUR WEEKS.
     Route: 041

REACTIONS (9)
  - Veillonella test positive [Unknown]
  - Bacteraemia [Recovered/Resolved]
  - Product use in unapproved indication [Unknown]
  - Parvimonas test positive [Unknown]
  - Pyrexia [Unknown]
  - Staphylococcal sepsis [Unknown]
  - Off label use [Unknown]
  - Bacterial disease carrier [Unknown]
  - Streptococcus test positive [Unknown]
